FAERS Safety Report 22372687 (Version 5)
Quarter: 2023Q4

REPORT INFORMATION
  Report Type: Report from Study
  Country: CN (occurrence: CN)
  Receive Date: 20230526
  Receipt Date: 20231120
  Transmission Date: 20240109
  Serious: Yes (Hospitalization)
  Sender: FDA-Public Use
  Company Number: CN-JNJFOC-20230546296

PATIENT
  Age: 41 Year
  Sex: Female
  Weight: 43 kg

DRUGS (10)
  1. GUSELKUMAB [Suspect]
     Active Substance: GUSELKUMAB
     Indication: Colitis ulcerative
     Route: 058
     Dates: start: 20220307, end: 20230509
  2. GUSELKUMAB [Suspect]
     Active Substance: GUSELKUMAB
     Route: 058
     Dates: start: 20230509, end: 20230509
  3. GUSELKUMAB [Suspect]
     Active Substance: GUSELKUMAB
  4. GUSELKUMAB [Suspect]
     Active Substance: GUSELKUMAB
  5. MESALAMINE [Concomitant]
     Active Substance: MESALAMINE
     Indication: Colitis ulcerative
     Dates: start: 20220308
  6. SIMETHICONE (DIMETHICONE) [Concomitant]
     Active Substance: DIMETHICONE
     Indication: Colonoscopy
     Dates: start: 20230509, end: 20230509
  7. PROPOFOL [Concomitant]
     Active Substance: PROPOFOL
     Indication: Anaesthesia
     Dates: start: 20230509, end: 20230509
  8. POLYETHYLENE GLYCOL [MACROGOL 3350] [Concomitant]
     Indication: Colonoscopy
     Dates: start: 20230508, end: 20230509
  9. LIDOCAINE [Concomitant]
     Active Substance: LIDOCAINE
     Indication: Colonoscopy
     Dates: start: 20230509, end: 20230509
  10. LYOPHILIZING THROMBIN [Concomitant]
     Indication: Intestinal haemorrhage
     Dosage: 3000 UNITS
     Dates: start: 20230509, end: 20230509

REACTIONS (1)
  - Colitis ulcerative [Recovered/Resolved]

NARRATIVE: CASE EVENT DATE: 20230515
